FAERS Safety Report 4997925-5 (Version None)
Quarter: 2006Q2

REPORT INFORMATION
  Report Type: 
  Country: None (occurrence: None)
  Receive Date: 20060510
  Receipt Date: 20060428
  Transmission Date: 20061013
  Serious: Yes (Other)
  Sender: FDA-Public Use
  Company Number: JP-AVENTIS-200611407JP

PATIENT
  Sex: Female

DRUGS (4)
  1. TAXOTERE [Suspect]
     Route: 041
  2. CARBOPLATIN [Suspect]
  3. TAXOL [Concomitant]
  4. FARMORUBICIN [Concomitant]

REACTIONS (3)
  - CEREBRAL INFARCTION [None]
  - CEREBRAL THROMBOSIS [None]
  - FALL [None]
